FAERS Safety Report 14814968 (Version 3)
Quarter: 2018Q3

REPORT INFORMATION
  Report Type: Report from Study
  Country: US (occurrence: US)
  Receive Date: 20180426
  Receipt Date: 20180925
  Transmission Date: 20181010
  Serious: Yes (Other)
  Sender: FDA-Public Use
  Company Number: PHEH2018US015734

PATIENT
  Age: 60 Year
  Sex: Male

DRUGS (2)
  1. COSENTYX [Suspect]
     Active Substance: SECUKINUMAB
     Indication: ANKYLOSING SPONDYLITIS
     Dosage: 150 MG, QMO
     Route: 058
  2. COSENTYX [Suspect]
     Active Substance: SECUKINUMAB
     Dosage: 150 MG, Q2W
     Route: 058

REACTIONS (11)
  - Concussion [Unknown]
  - Jaw fracture [Unknown]
  - Ankylosing spondylitis [Unknown]
  - Malaise [Unknown]
  - Spinal column injury [Unknown]
  - Pain [Unknown]
  - Drug ineffective [Unknown]
  - Coma [Unknown]
  - Brain injury [Recovering/Resolving]
  - Spinal fracture [Unknown]
  - Road traffic accident [Unknown]

NARRATIVE: CASE EVENT DATE: 201804
